FAERS Safety Report 26073377 (Version 1)
Quarter: 2025Q4

REPORT INFORMATION
  Report Type: Spontaneous
  Country: US (occurrence: US)
  Receive Date: 20251121
  Receipt Date: 20251121
  Transmission Date: 20260118
  Serious: No
  Sender: OTSUKA
  Company Number: US-MMM-Otsuka-VCJ4YQN7

PATIENT
  Age: 74 Year
  Sex: Female
  Weight: 101.59 kg

DRUGS (1)
  1. NUEDEXTA [Suspect]
     Active Substance: DEXTROMETHORPHAN HYDROBROMIDE\QUINIDINE SULFATE
     Indication: Retrograde amnesia
     Dosage: 1 DF (20-10 MG), QD (IN THE MORNING)
     Dates: start: 202510

REACTIONS (5)
  - Off label use [Unknown]
  - Expired product administered [Unknown]
  - Therapy interrupted [Unknown]
  - Inability to afford medication [Unknown]
  - Product use issue [Unknown]

NARRATIVE: CASE EVENT DATE: 20251025
